FAERS Safety Report 11443197 (Version 1)
Quarter: 2015Q3

REPORT INFORMATION
  Report Type: Spontaneous
  Country: FR (occurrence: FR)
  Receive Date: 20150901
  Receipt Date: 20150901
  Transmission Date: 20151125
  Serious: Yes (Hospitalization, Other)
  Sender: FDA-Public Use
  Company Number: FR-SHIRE-FR201510705

PATIENT
  Age: 77 Year
  Sex: Male

DRUGS (16)
  1. PLAVIX [Concomitant]
     Active Substance: CLOPIDOGREL BISULFATE
     Indication: ACUTE MYOCARDIAL INFARCTION
     Dosage: 75 MG, 1X/DAY:QD (IN THE MORNING)
     Route: 065
     Dates: start: 20150604
  2. EUPANTOL [Concomitant]
     Active Substance: PANTOPRAZOLE SODIUM
     Indication: PRODUCT USED FOR UNKNOWN INDICATION
     Dosage: 20 MG, 1X/DAY:QD (EVENING)
     Route: 065
  3. SPECIAFOLDINE [Concomitant]
     Active Substance: FOLIC ACID
     Indication: ACUTE MYOCARDIAL INFARCTION
     Dosage: 5 MG, 1X/DAY:QD (AT MIDDAY)
     Route: 065
     Dates: start: 20150604
  4. LASILIX                            /00032601/ [Concomitant]
     Active Substance: FUROSEMIDE
     Indication: PRODUCT USED FOR UNKNOWN INDICATION
     Dosage: 40 MG, 2X/DAY:BID (MORNING + MIDDAY)
     Route: 065
  5. DESLORATADINE. [Concomitant]
     Active Substance: DESLORATADINE
     Indication: PRURITUS
     Dosage: 5 MG, AS REQ^D (1X/DAY (EVENING) IN THE EVENT OF PRURITUS)
     Route: 065
  6. XAGRID [Suspect]
     Active Substance: ANAGRELIDE HYDROCHLORIDE
     Indication: ESSENTIAL THROMBOCYTHAEMIA
     Dosage: 1 MG (TWO 0.5 MG CAPSULES), 1X/DAY:QD (AT MORNING)
     Route: 048
     Dates: start: 20150611, end: 20150621
  7. PRIMPERAN [Concomitant]
     Active Substance: METOCLOPRAMIDE HYDROCHLORIDE
     Indication: PRODUCT USED FOR UNKNOWN INDICATION
     Dosage: UNK, AS REQ^D
     Route: 065
  8. NEBIVOLOL. [Concomitant]
     Active Substance: NEBIVOLOL
     Indication: PRODUCT USED FOR UNKNOWN INDICATION
     Dosage: 5 MG, 2X/DAY:BID (MORNING + EVENING)
     Route: 065
  9. ASPIRINE PROTECT [Concomitant]
     Active Substance: ASPIRIN
     Indication: PRODUCT USED FOR UNKNOWN INDICATION
     Dosage: UNK, 1X/DAY:QD (IN THE MORNING)
     Route: 065
  10. DIFFU-K [Concomitant]
     Active Substance: POTASSIUM CHLORIDE
     Indication: BLOOD POTASSIUM ABNORMAL
     Dosage: UNK, AS REQ^D
     Route: 065
  11. PERINDOPRIL [Concomitant]
     Active Substance: PERINDOPRIL
     Indication: PRODUCT USED FOR UNKNOWN INDICATION
     Dosage: 8 MG, 1X/DAY:QD (MORNING)
     Route: 065
  12. JOSIR [Concomitant]
     Active Substance: TAMSULOSIN
     Indication: PRODUCT USED FOR UNKNOWN INDICATION
     Dosage: 0.4 MG, 1X/DAY:QD (EVENING)
     Route: 065
  13. FINASTERIDE. [Concomitant]
     Active Substance: FINASTERIDE
     Indication: ACUTE MYOCARDIAL INFARCTION
     Dosage: 5 MG, 1X/DAY:QD (EVENING)
     Route: 065
     Dates: start: 20150604
  14. COUMADINE [Concomitant]
     Active Substance: WARFARIN SODIUM
     Indication: INTERNATIONAL NORMALISED RATIO ABNORMAL
     Dosage: 5 MG, 1X/DAY:QD (IN THE EVENING)
     Route: 065
  15. TAHOR [Concomitant]
     Active Substance: ATORVASTATIN CALCIUM
     Indication: PRODUCT USED FOR UNKNOWN INDICATION
     Dosage: 80 MG, 1X/DAY:QD (IN THE EVENING)
     Route: 065
  16. XAGRID [Suspect]
     Active Substance: ANAGRELIDE HYDROCHLORIDE
     Dosage: 0.5 MG, 1X/DAY:QD (AT MORNING)
     Route: 048
     Dates: start: 20150604, end: 20150610

REACTIONS (5)
  - Hepatic lesion [Unknown]
  - Acute pulmonary oedema [Recovered/Resolved]
  - Pain [Unknown]
  - Ejection fraction decreased [Recovered/Resolved]
  - Cardiomegaly [Unknown]

NARRATIVE: CASE EVENT DATE: 20150619
